FAERS Safety Report 6582882-0 (Version None)
Quarter: 2010Q1

REPORT INFORMATION
  Report Type: 
  Country: None (occurrence: None)
  Receive Date: 20100216
  Receipt Date: 20100203
  Transmission Date: 20100710
  Serious: Yes (Death, Other)
  Sender: FDA-Public Use
  Company Number: JP-PFIZER INC-2010015362

PATIENT
  Age: 64 Year
  Sex: Male

DRUGS (2)
  1. LINEZOLID [Suspect]
     Indication: ABSCESS
     Dosage: 1.2 G/ DAY
  2. VANCOMYCIN HCL [Concomitant]
     Indication: STAPHYLOCOCCAL INFECTION
     Dosage: 1 G/DAY

REACTIONS (3)
  - BONE MARROW FAILURE [None]
  - SEPTIC SHOCK [None]
  - URINARY TRACT INFECTION [None]
